FAERS Safety Report 9580060 (Version 1)
Quarter: 2013Q4

REPORT INFORMATION
  Report Type: Spontaneous
  Country: PT (occurrence: PT)
  Receive Date: 20131002
  Receipt Date: 20131002
  Transmission Date: 20140711
  Serious: Yes (Other)
  Sender: FDA-Public Use
  Company Number: PT-JNJFOC-20130914068

PATIENT
  Age: 81 Year
  Sex: Male

DRUGS (2)
  1. INFLIXIMAB, RECOMBINANT [Suspect]
     Indication: CROHN^S DISEASE
     Route: 042
  2. STEROIDS NOS [Suspect]
     Indication: CROHN^S DISEASE
     Route: 065

REACTIONS (1)
  - Disseminated tuberculosis [Recovered/Resolved]
